FAERS Safety Report 8884820 (Version 1)
Quarter: 2012Q4

REPORT INFORMATION
  Report Type: Report from Study
  Country: US (occurrence: US)
  Receive Date: 20121102
  Receipt Date: 20121102
  Transmission Date: 20130627
  Serious: Yes (Hospitalization)
  Sender: FDA-Public Use
  Company Number: US-AMGEN-USACT2012068433

PATIENT
  Age: 8 Year
  Sex: Male

DRUGS (12)
  1. CINACALCET HCL [Suspect]
     Indication: HYPERPARATHYROIDISM SECONDARY
     Dosage: 5 mg, UNK
     Dates: start: 20121005
  2. SINGULAIR [Concomitant]
     Dosage: 5 mg, qd
     Route: 048
  3. EPOGEN [Concomitant]
     Dosage: 1000 IU/ml, UNK
     Route: 042
  4. RENVELA [Concomitant]
     Dosage: 800 mg, tid
     Route: 048
  5. EMLA [Concomitant]
     Dosage: UNK
     Route: 061
  6. MIRALAX [Concomitant]
     Indication: CONSTIPATION
     Dosage: 17 g, qd
     Route: 048
  7. KAYEXALATE [Concomitant]
     Dosage: 10.5 g, qd
     Route: 048
  8. RENA-VITE [Concomitant]
     Dosage: UNK
     Route: 048
  9. DIALYSATE [Concomitant]
     Dosage: UNK
  10. CALCIUM CARBONATE [Concomitant]
     Dosage: 5 ml, qd
  11. ZEMPLAR [Concomitant]
     Dosage: 4 mug, UNK
     Route: 042
  12. FERRLECIT [Concomitant]
     Dosage: 12.5 mg/ml, UNK
     Route: 042

REACTIONS (1)
  - Hypertension [Unknown]
